FAERS Safety Report 17499244 (Version 1)
Quarter: 2020Q1

REPORT INFORMATION
  Report Type: Spontaneous
  Country: US (occurrence: US)
  Receive Date: 20200304
  Receipt Date: 20200304
  Transmission Date: 20200409
  Serious: Yes (Other)
  Sender: FDA-Public Use
  Company Number: US-BAUSCH-BL-2020-006453

PATIENT
  Age: 66 Year
  Sex: Female
  Weight: 113.95 kg

DRUGS (3)
  1. ELIQUIS [Suspect]
     Active Substance: APIXABAN
     Indication: PRODUCT USED FOR UNKNOWN INDICATION
     Route: 048
  2. UCERIS [Suspect]
     Active Substance: BUDESONIDE
     Indication: COLITIS ULCERATIVE
     Dosage: 1 APPLICATOR RECTALLY TWICE DAILY FOR 2 WEEKS AND THEN1 RECTALLY ONCE DAILY FOR 30 DAYS
     Route: 054
     Dates: start: 202001, end: 20200223
  3. ELIQUIS [Suspect]
     Active Substance: APIXABAN
     Dosage: DOSE REDUCED
     Route: 048

REACTIONS (1)
  - Rectal haemorrhage [Recovering/Resolving]

NARRATIVE: CASE EVENT DATE: 202001
